FAERS Safety Report 14703651 (Version 1)
Quarter: 2018Q2

REPORT INFORMATION
  Report Type: Spontaneous
  Country: US (occurrence: US)
  Receive Date: 20180402
  Receipt Date: 20180402
  Transmission Date: 20180711
  Serious: No
  Sender: FDA-Public Use
  Company Number: US-MISSION PHARMACAL COMPANY-2044922

PATIENT
  Age: 45 Year
  Sex: Male

DRUGS (4)
  1. ZYRTEC [Concomitant]
     Active Substance: CETIRIZINE HYDROCHLORIDE
     Route: 065
  2. THIOLA [Suspect]
     Active Substance: TIOPRONIN
     Indication: CYSTINURIA
     Route: 065
     Dates: start: 20180210
  3. SLEEPING PILL [Concomitant]
     Route: 065
  4. IBUPROFEN. [Concomitant]
     Active Substance: IBUPROFEN
     Route: 065

REACTIONS (8)
  - Rash [Unknown]
  - Social avoidant behaviour [Unknown]
  - Depressed mood [Unknown]
  - Muscular weakness [Unknown]
  - Arthralgia [Unknown]
  - Stress [Unknown]
  - Drug dose omission [Unknown]
  - Pruritus [Unknown]
